FAERS Safety Report 18695090 (Version 1)
Quarter: 2021Q1

REPORT INFORMATION
  Report Type: Spontaneous
  Country: US (occurrence: US)
  Receive Date: 20210102
  Receipt Date: 20210102
  Transmission Date: 20210419
  Serious: Yes (Hospitalization)
  Sender: FDA-Public Use
  Company Number: None

PATIENT
  Age: 66 Year
  Sex: Male
  Weight: 58.5 kg

DRUGS (12)
  1. HYDROCHLOROTHIAZIDE 25 MG [Suspect]
     Active Substance: HYDROCHLOROTHIAZIDE
     Indication: NEPHROLITHIASIS
     Dosage: ?          QUANTITY:1 TABLET(S);?
     Route: 048
     Dates: start: 20130301
  2. VITAMIN C [Concomitant]
     Active Substance: ASCORBIC ACID
  3. NIACIN. [Concomitant]
     Active Substance: NIACIN
  4. TADALFIL [Concomitant]
     Active Substance: TADALAFIL
  5. LOVUSASTATIN [Concomitant]
  6. LISINOPRIL 2.5 MG/ DAY [Suspect]
     Active Substance: LISINOPRIL
     Indication: HYPERTENSION
     Route: 048
     Dates: start: 20201102
  7. Q10 [Concomitant]
     Active Substance: DIETARY SUPPLEMENT\UBIDECARENONE
  8. TUMERIC [Concomitant]
     Active Substance: HERBALS\TURMERIC
  9. FISH OIL [Concomitant]
     Active Substance: FISH OIL
  10. VIT B [Concomitant]
     Active Substance: VITAMIN B
  11. VITAMIN D3 [Concomitant]
     Active Substance: CHOLECALCIFEROL
  12. BABY ASP [Concomitant]

REACTIONS (3)
  - Skin laceration [None]
  - Fall [None]
  - Loss of consciousness [None]

NARRATIVE: CASE EVENT DATE: 20201219
